FAERS Safety Report 25042271 (Version 2)
Quarter: 2025Q1

REPORT INFORMATION
  Report Type: Spontaneous
  Country: US (occurrence: US)
  Receive Date: 20250305
  Receipt Date: 20250313
  Transmission Date: 20250409
  Serious: Yes (Hospitalization, Other)
  Sender: UCB
  Company Number: US-UCBSA-2025011495

PATIENT
  Sex: Male

DRUGS (4)
  1. KEPPRA [Suspect]
     Active Substance: LEVETIRACETAM
     Indication: Seizure
  2. KEPPRA [Suspect]
     Active Substance: LEVETIRACETAM
     Indication: Idiopathic partial epilepsy
  3. LEVETIRACETAM [Suspect]
     Active Substance: LEVETIRACETAM
     Indication: Seizure
     Dates: start: 20240909
  4. LEVETIRACETAM [Suspect]
     Active Substance: LEVETIRACETAM
     Indication: Idiopathic partial epilepsy

REACTIONS (9)
  - Hospitalisation [Unknown]
  - Seizure [Unknown]
  - Tremor [Recovered/Resolved]
  - Gait inability [Recovered/Resolved]
  - Speech disorder [Recovered/Resolved]
  - Adverse event [Unknown]
  - Drug ineffective [Unknown]
  - Product substitution issue [Unknown]
  - Inability to afford medication [Unknown]
